FAERS Safety Report 5488401-4 (Version None)
Quarter: 2007Q3

REPORT INFORMATION
  Report Type: 
  Country: None (occurrence: None)
  Receive Date: 20070927
  Receipt Date: 20070605
  Transmission Date: 20080115
  Serious: No
  Sender: FDA-Public Use
  Company Number: US-CVT-070117

PATIENT
  Age: 43 Year
  Sex: Female
  Weight: 65.8 kg

DRUGS (4)
  1. RANEXA [Suspect]
     Indication: ANGINA PECTORIS
     Dosage: 500 MG, BID, ORAL;  500 MG, QD, ORAL
     Route: 048
     Dates: start: 20070215, end: 20070417
  2. RANEXA [Suspect]
     Indication: ANGINA PECTORIS
     Dosage: 500 MG, BID, ORAL;  500 MG, QD, ORAL
     Route: 048
     Dates: start: 20070418, end: 20070424
  3. COZAAR [Concomitant]
  4. ISOSORBIDE MONONITRATE [Concomitant]

REACTIONS (9)
  - BACK PAIN [None]
  - HAEMATURIA [None]
  - HEART RATE INCREASED [None]
  - HYPERHIDROSIS [None]
  - HYPERTENSION [None]
  - HYPOTENSION [None]
  - INSOMNIA [None]
  - PAIN IN JAW [None]
  - RENAL PAIN [None]
